FAERS Safety Report 9494159 (Version 3)
Quarter: 2013Q4

REPORT INFORMATION
  Report Type: Spontaneous
  Country: US (occurrence: None)
  Receive Date: 20130828
  Receipt Date: 20131023
  Transmission Date: 20140711
  Serious: Yes (Death, Hospitalization, Other)
  Sender: FDA-Public Use
  Company Number: INT_00286_2013

PATIENT
  Sex: Female

DRUGS (10)
  1. TAXOL [Suspect]
     Indication: HEPATIC LESION
  2. HERCEPTIN [Concomitant]
  3. CARBOPLATIN [Concomitant]
  4. ARIMIDEX [Concomitant]
  5. LAPATINIB [Concomitant]
  6. LASIX [Concomitant]
  7. MARINOL [Concomitant]
  8. ONDANSETRON [Concomitant]
  9. PROCHLORPERAZINE MALEATE [Concomitant]
  10. XELODA [Concomitant]

REACTIONS (15)
  - Metastases to lung [None]
  - Neuropathy peripheral [None]
  - Cellulitis [None]
  - Oedema peripheral [None]
  - Metastases to bone [None]
  - Metastases to adrenals [None]
  - Metastases to liver [None]
  - Anxiety [None]
  - Abdominal hernia [None]
  - Feeling hot [None]
  - Epistaxis [None]
  - Pain in extremity [None]
  - Device leakage [None]
  - Breast cancer [None]
  - Malignant neoplasm progression [None]
